FAERS Safety Report 17154826 (Version 2)
Quarter: 2020Q1

REPORT INFORMATION
  Report Type: Report from Study
  Country: US (occurrence: US)
  Receive Date: 20191214
  Receipt Date: 20200114
  Transmission Date: 20200409
  Serious: No
  Sender: FDA-Public Use
  Company Number: NVSC2019US028784

PATIENT
  Age: 52 Year
  Sex: Female

DRUGS (1)
  1. COSENTYX [Suspect]
     Active Substance: SECUKINUMAB
     Indication: PSORIASIS
     Dosage: 300 MG, QMO
     Route: 060

REACTIONS (6)
  - Scratch [Unknown]
  - Psoriasis [Unknown]
  - Alopecia [Unknown]
  - Stomatitis [Unknown]
  - Incorrect route of product administration [Unknown]
  - Pruritus [Unknown]
